FAERS Safety Report 4947276-X (Version None)
Quarter: 2006Q1

REPORT INFORMATION
  Report Type: 
  Country: None (occurrence: None)
  Receive Date: 20060313
  Receipt Date: 20060301
  Transmission Date: 20060701
  Serious: Yes (Hospitalization, Other)
  Sender: FDA-Public Use
  Company Number: 2006BH004139

PATIENT
  Age: 85 Year
  Sex: Male

DRUGS (1)
  1. ANTICOAGULANT CITRATE DEXTROSE [Suspect]
     Indication: ANAEMIA POSTOPERATIVE
     Dosage: IV
     Route: 042
     Dates: start: 20050912, end: 20050915

REACTIONS (3)
  - PHARMACEUTICAL PRODUCT COMPLAINT [None]
  - POOR QUALITY DRUG ADMINISTERED [None]
  - SERRATIA SEPSIS [None]
